FAERS Safety Report 11515185 (Version 1)
Quarter: 2015Q3

REPORT INFORMATION
  Report Type: Spontaneous
  Country: US (occurrence: US)
  Receive Date: 20150916
  Receipt Date: 20150916
  Transmission Date: 20151125
  Serious: Yes (Other)
  Sender: FDA-Public Use
  Company Number: US-BAYER-2015-421765

PATIENT
  Age: 83 Year
  Sex: Male
  Weight: 95.23 kg

DRUGS (2)
  1. LISINOPRIL. [Concomitant]
     Active Substance: LISINOPRIL
     Dosage: UNK
  2. CHILDREN CLARITIN ALLERGY [Suspect]
     Active Substance: LORATADINE
     Indication: SEASONAL ALLERGY
     Dosage: 1 TEASPOON, QD
     Route: 048
     Dates: start: 20150820, end: 20150822

REACTIONS (1)
  - Paralysis [Recovered/Resolved]

NARRATIVE: CASE EVENT DATE: 20150823
